FAERS Safety Report 6693763-6 (Version None)
Quarter: 2010Q2

REPORT INFORMATION
  Report Type: 
  Country: None (occurrence: None)
  Receive Date: 20100423
  Receipt Date: 20091231
  Transmission Date: 20101027
  Serious: No
  Sender: FDA-Public Use
  Company Number: A0837269A

PATIENT
  Sex: Female

DRUGS (1)
  1. DEXEDRINE [Suspect]
     Indication: DRUG USE FOR UNKNOWN INDICATION
     Route: 048

REACTIONS (1)
  - THERAPEUTIC RESPONSE DECREASED [None]
